FAERS Safety Report 10594178 (Version 1)
Quarter: 2014Q4

REPORT INFORMATION
  Report Type: Spontaneous
  Country: US (occurrence: US)
  Receive Date: 20141119
  Receipt Date: 20141119
  Transmission Date: 20150529
  Serious: No
  Sender: FDA-Public Use
  Company Number: US-BANPHARM-20142483

PATIENT
  Age: 81 Year
  Sex: Female

DRUGS (1)
  1. ERGOCALCIFEROL CAPSULES 1.25 MG [Suspect]
     Active Substance: ERGOCALCIFEROL
     Dosage: ONCE A WEEK,
     Route: 048

REACTIONS (1)
  - Tachycardia [Recovered/Resolved]
